FAERS Safety Report 4329996-3 (Version None)
Quarter: 2004Q1

REPORT INFORMATION
  Report Type: 
  Country: None (occurrence: None)
  Receive Date: 20040329
  Receipt Date: 20040317
  Transmission Date: 20041129
  Serious: Yes (Hospitalization)
  Sender: FDA-Public Use
  Company Number: 2003SE05437

PATIENT
  Age: 84 Year
  Sex: Male

DRUGS (14)
  1. ZOLADEX [Suspect]
     Indication: PROSTATE CANCER
     Dosage: 3.6 MG Q4WK SQ
     Dates: start: 20000308
  2. ANDROCUR [Suspect]
     Indication: PROSTATE CANCER
     Dosage: 100 MG BID PO
     Route: 048
     Dates: start: 20030303, end: 20030319
  3. PRIMASPAN [Concomitant]
  4. FURESIS [Concomitant]
  5. AMARYL [Concomitant]
  6. ADALAT OROS [Concomitant]
  7. MINIAB [Concomitant]
  8. NITRO [Concomitant]
  9. TENOX [Concomitant]
  10. LEVOLAC [Concomitant]
  11. SELEXID [Concomitant]
  12. ORMOX [Concomitant]
  13. ASPIRIN [Concomitant]
  14. EMCONCOR [Concomitant]

REACTIONS (2)
  - HYDRONEPHROSIS [None]
  - URINARY RETENTION [None]
